FAERS Safety Report 15904669 (Version 3)
Quarter: 2019Q1

REPORT INFORMATION
  Report Type: Report from Study
  Country: US (occurrence: US)
  Receive Date: 20190204
  Receipt Date: 20190326
  Transmission Date: 20190417
  Serious: No
  Sender: FDA-Public Use
  Company Number: PHEH2019US004696

PATIENT
  Sex: Male

DRUGS (2)
  1. ENTRESTO [Suspect]
     Active Substance: SACUBITRIL\VALSARTAN
     Indication: CARDIAC DISORDER
  2. ENTRESTO [Suspect]
     Active Substance: SACUBITRIL\VALSARTAN
     Indication: CARDIAC FAILURE CONGESTIVE
     Route: 048

REACTIONS (4)
  - Fluid retention [Unknown]
  - Weight increased [Unknown]
  - Fatigue [Unknown]
  - Product use in unapproved indication [Unknown]
